FAERS Safety Report 10170862 (Version 2)
Quarter: 2014Q2

REPORT INFORMATION
  Report Type: Report from Study
  Country: GB (occurrence: GB)
  Receive Date: 20140514
  Receipt Date: 20140514
  Transmission Date: 20141212
  Serious: Yes (Hospitalization)
  Sender: FDA-Public Use
  Company Number: GB-ROCHE-1161771

PATIENT
  Age: 65 Year
  Sex: Female
  Weight: 68.4 kg

DRUGS (14)
  1. OBINUTUZUMAB [Suspect]
     Indication: B-CELL LYMPHOMA
     Dosage: LAST VOLUME TAKEN 1000ML EITH DOSE CONCENTRATION 4MG/ML, DATE OF THE LAT DOSE : 14/NOV/2012
     Route: 042
     Dates: start: 20121003
  2. CYCLOPHOSPHAMIDE [Suspect]
     Indication: B-CELL LYMPHOMA
     Dosage: LAST DOS TAKEN 1300MG, DATE OF LAST DOSE PRIOR TO SAE 14/OV/2012
     Route: 042
     Dates: start: 20121003
  3. VINCRISTINE [Suspect]
     Indication: B-CELL LYMPHOMA
     Dosage: DATE OF LAST DOSE PRIOR TO SAE 14/NOV/2012
     Route: 042
     Dates: start: 20121003
  4. PREDNISOLONE [Suspect]
     Indication: B-CELL LYMPHOMA
     Dosage: LAST DOSE 100MG, DATE OF LAST DOSE PRIOR TO SAE 18/NOV/2012
     Route: 042
     Dates: start: 20121003
  5. PARACETAMOL [Concomitant]
     Route: 065
     Dates: start: 20121003
  6. CHLORPHENAMINE [Concomitant]
     Route: 065
     Dates: start: 20121003
  7. ONDANSETRON [Concomitant]
     Route: 065
     Dates: start: 20121003
  8. ZOLMITRIPTAN [Concomitant]
     Indication: MIGRAINE
     Route: 065
     Dates: start: 20010808
  9. AUGMENTIN [Concomitant]
     Indication: URINARY TRACT INFECTION
     Route: 065
     Dates: start: 20121105, end: 20121110
  10. ACYCLOVIR [Concomitant]
     Indication: VIRAL INFECTION
     Route: 065
     Dates: start: 20121001
  11. COTRIMOXAZOLE [Concomitant]
     Indication: PNEUMONITIS
     Route: 065
     Dates: start: 20121001
  12. DIFFLAM [Concomitant]
     Indication: OROPHARYNGEAL PAIN
     Route: 065
     Dates: start: 20121127
  13. BACTRIM [Concomitant]
     Indication: FEBRILE NEUTROPENIA
     Route: 065
     Dates: start: 20121128, end: 20121128
  14. ALLOPURINOL [Concomitant]
     Indication: HYPERURICAEMIA
     Route: 065
     Dates: start: 20121001, end: 20130502

REACTIONS (1)
  - Febrile neutropenia [Recovered/Resolved]
